FAERS Safety Report 14770587 (Version 4)
Quarter: 2018Q3

REPORT INFORMATION
  Report Type: Spontaneous
  Country: SK (occurrence: SK)
  Receive Date: 20180417
  Receipt Date: 20180724
  Transmission Date: 20181010
  Serious: Yes (Hospitalization)
  Sender: FDA-Public Use
  Company Number: SK-PFIZER INC-2018155881

PATIENT
  Age: 78 Year
  Sex: Female
  Weight: 77 kg

DRUGS (7)
  1. ZALDIAR [Suspect]
     Active Substance: ACETAMINOPHEN\TRAMADOL HYDROCHLORIDE
     Indication: SPINAL PAIN
  2. CLOPIDOGREL [Suspect]
     Active Substance: CLOPIDOGREL BISULFATE
     Dosage: UNK
     Route: 048
  3. DORSIFLEX /00167701/ [Suspect]
     Active Substance: MEPHENOXALONE
     Indication: SPINAL PAIN
     Dosage: UNK
     Route: 048
  4. ARTHROTEC [Suspect]
     Active Substance: DICLOFENAC SODIUM\MISOPROSTOL
     Indication: SPINAL PAIN
     Dosage: UNK
     Route: 048
  5. EMANERA [Suspect]
     Active Substance: ESOMEPRAZOLE MAGNESIUM
     Indication: PROPHYLAXIS
     Route: 048
  6. ACC /00082801/ [Suspect]
     Active Substance: ACETYLCYSTEINE
     Dosage: UNK
  7. AFLAMIL [Suspect]
     Active Substance: ACECLOFENAC
     Indication: SPINAL PAIN
     Dosage: UNK
     Route: 048

REACTIONS (1)
  - Toxic skin eruption [Recovered/Resolved]

NARRATIVE: CASE EVENT DATE: 20171201
